FAERS Safety Report 20336900 (Version 1)
Quarter: 2022Q1

REPORT INFORMATION
  Report Type: Report from Study
  Country: CA (occurrence: CA)
  Receive Date: 20220114
  Receipt Date: 20220114
  Transmission Date: 20220423
  Serious: Yes (Other)
  Sender: FDA-Public Use
  Company Number: CA-BAUSCH-BL-2022-000839

PATIENT
  Age: 77 Year
  Sex: Female

DRUGS (12)
  1. DILTIAZEM [Suspect]
     Active Substance: DILTIAZEM
     Indication: Product used for unknown indication
     Route: 065
  2. COSENTYX [Suspect]
     Active Substance: SECUKINUMAB
     Indication: Ankylosing spondylitis
     Route: 058
  3. COSENTYX [Suspect]
     Active Substance: SECUKINUMAB
     Route: 065
  4. CYMBALTA [Suspect]
     Active Substance: DULOXETINE HYDROCHLORIDE
     Indication: Pain
     Route: 065
  5. LYRICA [Suspect]
     Active Substance: PREGABALIN
     Indication: Product used for unknown indication
     Route: 065
  6. ACETAMINOPHEN [Concomitant]
     Active Substance: ACETAMINOPHEN
     Indication: Product used for unknown indication
     Route: 065
  7. DESOXIMETASONE [Concomitant]
     Active Substance: DESOXIMETASONE
     Indication: Product used for unknown indication
     Route: 065
  8. ERELZI [Concomitant]
     Active Substance: ETANERCEPT-SZZS
     Indication: Product used for unknown indication
     Route: 065
  9. HUMIRA [Concomitant]
     Active Substance: ADALIMUMAB
     Indication: Product used for unknown indication
     Route: 058
  10. METHOTREXATE [Concomitant]
     Active Substance: METHOTREXATE
     Indication: Product used for unknown indication
     Route: 065
  11. NAPROXEN [Concomitant]
     Active Substance: NAPROXEN
     Indication: Product used for unknown indication
     Route: 065
  12. XARELTO [Concomitant]
     Active Substance: RIVAROXABAN
     Indication: Product used for unknown indication

REACTIONS (45)
  - Aortic arteriosclerosis [Unknown]
  - Arthritis [Unknown]
  - Arthropathy [Unknown]
  - Back pain [Unknown]
  - Burning sensation [Unknown]
  - Chest pain [Unknown]
  - Chondrocalcinosis [Unknown]
  - Cyst [Unknown]
  - Cystitis [Unknown]
  - Dry skin [Unknown]
  - Dyspnoea exertional [Unknown]
  - Dysuria [Unknown]
  - Eye pain [Unknown]
  - Faeces discoloured [Unknown]
  - Fall [Unknown]
  - Fatigue [Unknown]
  - Fibromyalgia [Unknown]
  - Hepatomegaly [Unknown]
  - Hypoaesthesia [Unknown]
  - Intervertebral disc degeneration [Unknown]
  - Intervertebral disc space narrowing [Unknown]
  - Musculoskeletal stiffness [Unknown]
  - Neck pain [Unknown]
  - Orthopnoea [Unknown]
  - Osteoarthritis [Unknown]
  - Osteoporosis [Unknown]
  - Pain in extremity [Unknown]
  - Peripheral swelling [Unknown]
  - Restlessness [Unknown]
  - Rib fracture [Unknown]
  - Seizure [Unknown]
  - Spondyloarthropathy [Unknown]
  - Tendon pain [Unknown]
  - Tendonitis [Unknown]
  - Trigger finger [Unknown]
  - Vision blurred [Unknown]
  - Vitamin D decreased [Unknown]
  - Abdominal distension [Unknown]
  - Tremor [Unknown]
  - Pain [Unknown]
  - Gait inability [Unknown]
  - Dizziness [Unknown]
  - Hyperhidrosis [Unknown]
  - Insomnia [Unknown]
  - Drug ineffective [Unknown]
